FAERS Safety Report 6555279-7 (Version None)
Quarter: 2010Q1

REPORT INFORMATION
  Report Type: 
  Country: None (occurrence: None)
  Receive Date: 20100128
  Receipt Date: 20090305
  Transmission Date: 20100710
  Serious: No
  Sender: FDA-Public Use
  Company Number: A0771853A

PATIENT
  Sex: Female

DRUGS (3)
  1. BUPROPION HYDROCHLORIDE [Suspect]
     Indication: DEPRESSION
     Dosage: 100MG TWICE PER DAY
     Route: 048
     Dates: start: 20090204
  2. ZOLOFT [Concomitant]
  3. LORAZEPAM [Concomitant]

REACTIONS (5)
  - EYE SWELLING [None]
  - JOINT SWELLING [None]
  - LOCAL SWELLING [None]
  - PRURITUS [None]
  - URTICARIA [None]
